FAERS Safety Report 9260010 (Version 1)
Quarter: 2013Q2

REPORT INFORMATION
  Report Type: Spontaneous
  Country: MX (occurrence: MX)
  Receive Date: 20130429
  Receipt Date: 20130429
  Transmission Date: 20140414
  Serious: Yes (Death, Hospitalization, Other)
  Sender: FDA-Public Use
  Company Number: MX-JNJFOC-20130412764

PATIENT
  Age: 85 Year
  Sex: Male

DRUGS (3)
  1. XARELTO [Suspect]
     Indication: CEREBROVASCULAR ACCIDENT PROPHYLAXIS
     Route: 048
     Dates: start: 2012
  2. XARELTO [Suspect]
     Indication: ATRIAL FIBRILLATION
     Route: 048
     Dates: start: 2012
  3. MEMANTINE [Concomitant]
     Indication: COGNITIVE DISORDER
     Route: 065

REACTIONS (3)
  - Pulmonary oedema [Fatal]
  - Cognitive disorder [Unknown]
  - Haemorrhage intracranial [Unknown]
